FAERS Safety Report 7522315-0 (Version None)
Quarter: 2011Q2

REPORT INFORMATION
  Report Type: 
  Country: None (occurrence: None)
  Receive Date: 20110603
  Receipt Date: 20110520
  Transmission Date: 20111010
  Serious: Yes (Other)
  Sender: FDA-Public Use
  Company Number: PHHY2011FR47144

PATIENT
  Sex: Male

DRUGS (1)
  1. VALSARTAN  AND HYDROCHLOROTHIAZIDE [Suspect]
     Dosage: 80 MG VALS AND 12.5 MG HCT, UNK
     Dates: start: 20090101

REACTIONS (4)
  - SKIN EXFOLIATION [None]
  - SKIN CHAPPED [None]
  - RASH VESICULAR [None]
  - SKIN LESION [None]
